FAERS Safety Report 7777456-X (Version None)
Quarter: 2011Q3

REPORT INFORMATION
  Report Type: 
  Country: None (occurrence: None)
  Receive Date: 20110926
  Receipt Date: 20110919
  Transmission Date: 20111222
  Serious: Yes (Death)
  Sender: FDA-Public Use
  Company Number: CA-PFIZER INC-2010060862

PATIENT
  Age: 60 Year
  Sex: Female
  Weight: 62.4 kg

DRUGS (14)
  1. DILAUDID [Concomitant]
     Indication: CANCER PAIN
     Dosage: 1 MG Q 3H AS NEEDED
     Route: 058
     Dates: start: 20100504, end: 20100505
  2. ATIVAN [Concomitant]
     Indication: INSOMNIA
     Dosage: 1 MG Q 5H PRN
     Dates: start: 20100505, end: 20100505
  3. CIPROFLOXACIN [Concomitant]
     Indication: INFECTIOUS PERITONITIS
     Dosage: 500 MG, 2X/DAY
     Route: 048
     Dates: start: 20100506, end: 20100506
  4. ZOFRAN [Concomitant]
     Indication: INTESTINAL OBSTRUCTION
     Dosage: 4 MG Q 4-6,AS NEEDED
     Route: 042
     Dates: start: 20100505, end: 20100505
  5. CIPROFLOXACIN [Concomitant]
     Dosage: 400 MG, 2 H
     Route: 042
     Dates: start: 20100506, end: 20100506
  6. DIOVAN [Concomitant]
     Indication: HYPERTENSION
     Dosage: 160 MG, 1X/DAY
     Route: 048
     Dates: start: 20080101, end: 20100506
  7. FENTANYL [Concomitant]
     Indication: CANCER PAIN
     Dosage: 100 MCG Q 72 H
     Route: 061
     Dates: start: 20100505, end: 20100505
  8. HUMULIN R [Concomitant]
     Indication: DIABETES MELLITUS
     Dosage: DOSE TO SCALE, 3X/DAY
     Route: 058
     Dates: start: 20100504, end: 20100506
  9. METRONIDAZOLE [Concomitant]
     Indication: INFECTIOUS PERITONITIS
     Dosage: 500 MG OF 12 H
     Route: 042
     Dates: start: 20100506, end: 20100506
  10. CEFTRIAXONE [Concomitant]
     Indication: INFECTIOUS PERITONITIS
     Dosage: 1 G, OF 24 H
     Route: 042
     Dates: start: 20100506, end: 20100506
  11. DALTEPARIN SODIUM [Suspect]
     Indication: PULMONARY EMBOLISM
     Dosage: 95000 IU, UNK
     Route: 058
     Dates: start: 20100504, end: 20100505
  12. TRAZODONE [Concomitant]
     Indication: INSOMNIA
     Dosage: 50 MG  QHS
     Route: 048
     Dates: start: 20100505, end: 20100505
  13. DALTEPARIN SODIUM [Suspect]
     Indication: DEEP VEIN THROMBOSIS
     Dosage: 12500 IU, UNK
     Route: 058
     Dates: start: 20100428, end: 20100503
  14. DILTIAZEM [Concomitant]
     Indication: HYPERTENSION
     Dosage: 360 MG, UNK
     Route: 048
     Dates: start: 20060101, end: 20100507

REACTIONS (2)
  - SMALL INTESTINAL OBSTRUCTION [None]
  - INFECTIOUS PERITONITIS [None]
